FAERS Safety Report 9419310 (Version 1)
Quarter: 2013Q3

REPORT INFORMATION
  Report Type: Spontaneous
  Country: US (occurrence: US)
  Receive Date: 20130725
  Receipt Date: 20130725
  Transmission Date: 20140515
  Serious: No
  Sender: FDA-Public Use
  Company Number: US-GLAXOSMITHKLINE-A1009348A

PATIENT
  Age: 25 Year
  Sex: Female

DRUGS (8)
  1. LAMICTAL [Suspect]
     Indication: BIPOLAR DISORDER
     Dosage: 25MG PER DAY
     Route: 048
     Dates: start: 201212
  2. INSULIN [Concomitant]
  3. LEXAPRO [Concomitant]
  4. STRATTERA [Concomitant]
  5. COZAAR [Concomitant]
  6. ALVESCO [Concomitant]
  7. PRO-AIR [Concomitant]
  8. VERAMYST [Concomitant]

REACTIONS (3)
  - Dyskinesia [Not Recovered/Not Resolved]
  - Paraesthesia [Not Recovered/Not Resolved]
  - Musculoskeletal pain [Not Recovered/Not Resolved]
